FAERS Safety Report 25118803 (Version 3)
Quarter: 2025Q2

REPORT INFORMATION
  Report Type: Spontaneous
  Country: US (occurrence: US)
  Receive Date: 20250325
  Receipt Date: 20250624
  Transmission Date: 20250717
  Serious: No
  Sender: BRISTOL-MYERS SQUIBB COMPANY
  Company Number: US-BRISTOL-MYERS SQUIBB COMPANY-2025-043783

PATIENT
  Age: 64 Year
  Sex: Female

DRUGS (1)
  1. REVLIMID [Suspect]
     Active Substance: LENALIDOMIDE
     Indication: Subacute cutaneous lupus erythematosus
     Dosage: FREQ: DAILY FOR EVERY 28 DAYS
     Route: 048

REACTIONS (3)
  - Product dose omission issue [Unknown]
  - Product prescribing issue [Unknown]
  - Off label use [Unknown]
